FAERS Safety Report 8177976-2 (Version None)
Quarter: 2012Q1

REPORT INFORMATION
  Report Type: 
  Country: None (occurrence: None)
  Receive Date: 20120301
  Receipt Date: 20120227
  Transmission Date: 20120608
  Serious: Yes (Other)
  Sender: FDA-Public Use
  Company Number: US-VERTEX PHARMACEUTICALS INC.-AE-2011-004083

PATIENT
  Sex: Male
  Weight: 88 kg

DRUGS (3)
  1. RIBAVRIN [Concomitant]
     Indication: HEPATITIS C
     Dates: start: 20110201
  2. INCIVEK [Suspect]
     Indication: HEPATITIS C
     Route: 048
     Dates: start: 20110622, end: 20110901
  3. PEG-INTRON [Concomitant]
     Indication: HEPATITIS C
     Dates: start: 20110201

REACTIONS (8)
  - PYREXIA [None]
  - IMPAIRED HEALING [None]
  - ARTHRALGIA [None]
  - SEGMENTED HYALINISING VASCULITIS [None]
  - DRUG RASH WITH EOSINOPHILIA AND SYSTEMIC SYMPTOMS [None]
  - ABDOMINAL PAIN [None]
  - RASH PRURITIC [None]
  - OEDEMA PERIPHERAL [None]
